FAERS Safety Report 24836496 (Version 1)
Quarter: 2025Q1

REPORT INFORMATION
  Report Type: Spontaneous
  Country: US (occurrence: None)
  Receive Date: 20250110
  Receipt Date: 20250110
  Transmission Date: 20250408
  Serious: Yes (Other)
  Sender: FDA-CTU
  Company Number: None

PATIENT
  Age: 34 Year
  Sex: Male
  Weight: 108 kg

DRUGS (9)
  1. WEGOVY [Suspect]
     Active Substance: SEMAGLUTIDE
     Indication: Weight decreased
     Route: 030
  2. METHADONE [Concomitant]
     Active Substance: METHADONE HYDROCHLORIDE
  3. GABAPENTIN [Concomitant]
     Active Substance: GABAPENTIN
  4. VRAYLAR [Concomitant]
     Active Substance: CARIPRAZINE
  5. ATIVAN [Concomitant]
     Active Substance: LORAZEPAM
  6. BELSOMRA [Concomitant]
     Active Substance: SUVOREXANT
  7. VITAMIN D3 [Concomitant]
     Active Substance: CHOLECALCIFEROL
  8. MINIPRESS [Concomitant]
     Active Substance: PRAZOSIN HYDROCHLORIDE
  9. GUANFACINE [Concomitant]
     Active Substance: GUANFACINE

REACTIONS (3)
  - Back pain [None]
  - Arthralgia [None]
  - Pain in extremity [None]

NARRATIVE: CASE EVENT DATE: 20241230
